FAERS Safety Report 7303332-2 (Version None)
Quarter: 2011Q1

REPORT INFORMATION
  Report Type: 
  Country: None (occurrence: None)
  Receive Date: 20110221
  Receipt Date: 20110210
  Transmission Date: 20110831
  Serious: Yes (Life-Threatening, Hospitalization)
  Sender: FDA-Public Use
  Company Number: FR-BRISTOL-MYERS SQUIBB COMPANY-15555915

PATIENT
  Age: 72 Year
  Sex: Male

DRUGS (4)
  1. AMOXICILLIN [Suspect]
     Indication: BACTERIAL SEPSIS
     Route: 048
     Dates: start: 20101030, end: 20101104
  2. OFLOXACIN [Suspect]
     Route: 048
     Dates: start: 20101030, end: 20101104
  3. AMIKIN [Suspect]
     Indication: BACTERIAL SEPSIS
     Route: 048
     Dates: start: 20101029, end: 20101104
  4. GLUCOPHAGE [Suspect]
     Indication: TYPE 2 DIABETES MELLITUS
     Dosage: TAB
     Route: 048
     Dates: start: 20000101, end: 20101105

REACTIONS (5)
  - RENAL FAILURE ACUTE [None]
  - FALL [None]
  - LACTIC ACIDOSIS [None]
  - MALAISE [None]
  - SEPSIS [None]
